FAERS Safety Report 15862518 (Version 1)
Quarter: 2019Q1

REPORT INFORMATION
  Report Type: Spontaneous
  Country: US (occurrence: US)
  Receive Date: 20190124
  Receipt Date: 20190124
  Transmission Date: 20190417
  Serious: Yes (Other)
  Sender: FDA-Public Use
  Company Number: None

PATIENT
  Age: 6 Year
  Sex: Male
  Weight: 22.5 kg

DRUGS (1)
  1. MERCAPTOPURINE TABLETS (6-MP) [Suspect]
     Active Substance: MERCAPTOPURINE
     Indication: LEUKAEMIA RECURRENT PROPHYLAXIS
     Dosage: ?          QUANTITY:46 TABLET(S);?
     Route: 048
     Dates: start: 20181213, end: 20181224

REACTIONS (5)
  - Pain [None]
  - Alopecia [None]
  - Toxicity to various agents [None]
  - Pyrexia [None]
  - Neutropenia [None]

NARRATIVE: CASE EVENT DATE: 20181225
